FAERS Safety Report 25810001 (Version 1)
Quarter: 2025Q3

REPORT INFORMATION
  Report Type: Spontaneous
  Country: BR (occurrence: BR)
  Receive Date: 20250917
  Receipt Date: 20250917
  Transmission Date: 20251020
  Serious: Yes (Other)
  Sender: PHARMOBEDIENT CONSULTING, LLC
  Company Number: BR-Pharmobedient-000214

PATIENT
  Age: 71 Year
  Sex: Female

DRUGS (3)
  1. LITHIUM CARBONATE [Suspect]
     Active Substance: LITHIUM CARBONATE
     Indication: Bipolar II disorder
     Dosage: CONTROLLED-RELEASE
     Dates: start: 2018
  2. QUETIAPINE [Concomitant]
     Active Substance: QUETIAPINE
     Indication: Bipolar II disorder
     Dates: start: 2018
  3. DENOSUMAB [Concomitant]
     Active Substance: DENOSUMAB
     Indication: Osteoporosis
     Dates: start: 2017

REACTIONS (2)
  - Hyperparathyroidism [Recovered/Resolved]
  - Acquired hypocalciuric hypercalcaemia [Recovered/Resolved]

NARRATIVE: CASE EVENT DATE: 20190101
